FAERS Safety Report 4724727-7 (Version None)
Quarter: 2005Q3

REPORT INFORMATION
  Report Type: 
  Country: None (occurrence: None)
  Receive Date: 20050720
  Receipt Date: 20050720
  Transmission Date: 20060218
  Serious: Yes (Other)
  Sender: FDA-Public Use
  Company Number: None

PATIENT

DRUGS (1)
  1. VECURONIUM BROMIDE [Suspect]
     Indication: PREOPERATIVE CARE
     Dosage: 8 MG   INTRAVENOU;   6 MG   INTRAVENOU
     Route: 042

REACTIONS (2)
  - DRUG INEFFECTIVE [None]
  - MUSCLE TWITCHING [None]
